FAERS Safety Report 14000720 (Version 3)
Quarter: 2017Q4

REPORT INFORMATION
  Report Type: Spontaneous
  Country: US (occurrence: US)
  Receive Date: 20170922
  Receipt Date: 20171229
  Transmission Date: 20180321
  Serious: Yes (Other)
  Sender: FDA-Public Use
  Company Number: US-PFIZER INC-2017405741

PATIENT
  Age: 66 Year
  Sex: Female
  Weight: 60 kg

DRUGS (1)
  1. PREMARIN [Suspect]
     Active Substance: ESTROGENS, CONJUGATED
     Indication: URETHRAL DISORDER
     Dosage: 0.625MG, PUTS A LITTLE BIT ON TIP OF FINGER AND PLACES ON THE SPOT
     Dates: start: 2009

REACTIONS (3)
  - Drug ineffective for unapproved indication [Unknown]
  - Vulvovaginal discomfort [Unknown]
  - Urethral haemorrhage [Unknown]
